FAERS Safety Report 5831703-X (Version None)
Quarter: 2008Q3

REPORT INFORMATION
  Report Type: 
  Country: None (occurrence: None)
  Receive Date: 20080729
  Receipt Date: 20080714
  Transmission Date: 20090109
  Serious: Yes (Other)
  Sender: FDA-Public Use
  Company Number: 19794

PATIENT
  Age: 11 Year
  Sex: Female

DRUGS (5)
  1. ETOPOSIDE [Suspect]
     Indication: B-CELL LYMPHOMA STAGE III
     Dosage: 100 MG/M2 QD
  2. METHOTREXATE [Suspect]
     Dosage: 5000 MG/M2 QD
  3. CYTARABINE [Suspect]
     Dosage: 150 MG/M2 QD
  4. DEXAMETHASONE [Suspect]
     Dosage: 10 MG/M2 QD
  5. IFOSFAMIDE [Suspect]
     Dosage: 800 MG/M2 QD

REACTIONS (3)
  - APLASIA [None]
  - APPENDICITIS PERFORATED [None]
  - FEBRILE NEUTROPENIA [None]
